FAERS Safety Report 9617233 (Version 2)
Quarter: 2013Q4

REPORT INFORMATION
  Report Type: Spontaneous
  Country: US (occurrence: US)
  Receive Date: 20131011
  Receipt Date: 20131018
  Transmission Date: 20140711
  Serious: Yes (Hospitalization)
  Sender: FDA-Public Use
  Company Number: US-OTSUKA-US-2013-11887

PATIENT
  Sex: Male

DRUGS (1)
  1. ABILIFY MAINTENA [Suspect]
     Indication: SCHIZOAFFECTIVE DISORDER
     Dosage: UNK
     Route: 030

REACTIONS (2)
  - Hallucination, auditory [Unknown]
  - Off label use [Unknown]
